FAERS Safety Report 4581265-2 (Version None)
Quarter: 2005Q1

REPORT INFORMATION
  Report Type: 
  Country: None (occurrence: None)
  Receive Date: 20050214
  Receipt Date: 20040915
  Transmission Date: 20050727
  Serious: No
  Sender: FDA-Public Use
  Company Number: US-GLAXOSMITHKLINE-A0526009A

PATIENT
  Age: 38 Year
  Sex: Female
  Weight: 100 kg

DRUGS (4)
  1. LAMICTAL [Suspect]
     Indication: ILL-DEFINED DISORDER
     Route: 048
     Dates: start: 20040712, end: 20040914
  2. ATIVAN [Concomitant]
     Dosage: 1MG THREE TIMES PER DAY
     Route: 048
  3. EFFEXOR XR [Concomitant]
     Dosage: 300MG PER DAY
     Route: 048
  4. AMBIEN [Concomitant]
     Dosage: 10MG AT NIGHT
     Route: 048

REACTIONS (1)
  - RASH [None]
